FAERS Safety Report 6416599-X (Version None)
Quarter: 2009Q4

REPORT INFORMATION
  Report Type: 
  Country: None (occurrence: None)
  Receive Date: 20091027
  Receipt Date: 20091019
  Transmission Date: 20100525
  Serious: Yes (Other)
  Sender: FDA-Public Use
  Company Number: AU-ASTRAZENECA-2009SE21054

PATIENT
  Age: 67 Year
  Sex: Female

DRUGS (4)
  1. ATACAND HCT [Suspect]
     Dosage: 16/12.5, 1 MG DAILY
     Route: 048
  2. CRESTOR [Suspect]
     Route: 048
  3. NEXIUM [Suspect]
     Route: 048
  4. AMARYL [Suspect]
     Route: 048

REACTIONS (4)
  - ANAEMIA [None]
  - LEUKAEMIA [None]
  - MACROCYTOSIS [None]
  - NEUTROPENIA [None]
